FAERS Safety Report 8557733-5 (Version None)
Quarter: 2012Q3

REPORT INFORMATION
  Report Type: 
  Country: None (occurrence: None)
  Receive Date: 20120801
  Receipt Date: 20111208
  Transmission Date: 20120928
  Serious: No
  Sender: FDA-Public Use
  Company Number: US-BRISTOL-MYERS SQUIBB COMPANY-16279192

PATIENT

DRUGS (1)
  1. VUMON [Suspect]

REACTIONS (1)
  - INCORRECT STORAGE OF DRUG [None]
